FAERS Safety Report 8300607-5 (Version None)
Quarter: 2012Q2

REPORT INFORMATION
  Report Type: 
  Country: None (occurrence: None)
  Receive Date: 20120420
  Receipt Date: 20120410
  Transmission Date: 20120825
  Serious: Yes (Other)
  Sender: FDA-Public Use
  Company Number: PHHY2012KR006484

PATIENT
  Sex: Female
  Weight: 48 kg

DRUGS (1)
  1. EXJADE [Suspect]
     Indication: MYELODYSPLASTIC SYNDROME
     Dosage: 750 MG, UNK
     Route: 048
     Dates: start: 20100201

REACTIONS (4)
  - GENERAL PHYSICAL HEALTH DETERIORATION [None]
  - BLOOD COUNT ABNORMAL [None]
  - OSTEOPOROSIS [None]
  - THROMBOCYTOPENIA [None]
